FAERS Safety Report 5079553-9 (Version None)
Quarter: 2006Q3

REPORT INFORMATION
  Report Type: 
  Country: None (occurrence: None)
  Receive Date: 20060811
  Receipt Date: 20060811
  Transmission Date: 20061208
  Serious: No
  Sender: FDA-Public Use
  Company Number: None

PATIENT
  Age: 70 Year
  Sex: Male
  Weight: 61.2356 kg

DRUGS (1)
  1. CIPRO [Suspect]
     Indication: ESCHERICHIA URINARY TRACT INFECTION
     Dosage: 500MG  TWICE DAILY  PO
     Route: 048
     Dates: start: 20060719, end: 20060723

REACTIONS (6)
  - ABDOMINAL DISCOMFORT [None]
  - DIARRHOEA [None]
  - FAECAL INCONTINENCE [None]
  - FEELING ABNORMAL [None]
  - GASTROINTESTINAL DISORDER [None]
  - URINARY TRACT INFECTION [None]
